FAERS Safety Report 4943077-7 (Version None)
Quarter: 2006Q1

REPORT INFORMATION
  Report Type: 
  Country: None (occurrence: None)
  Receive Date: 20060314
  Receipt Date: 20050125
  Transmission Date: 20060701
  Serious: Yes (Other)
  Sender: FDA-Public Use
  Company Number: US-MERCK-0501USA04123

PATIENT
  Age: 63 Year
  Sex: Male
  Weight: 155 kg

DRUGS (5)
  1. VIOXX [Suspect]
     Indication: ARTHRITIS
     Route: 048
     Dates: start: 20020101, end: 20031201
  2. GLYBURIDE [Concomitant]
     Indication: DIABETES MELLITUS
     Route: 065
  3. METFORMIN [Concomitant]
     Indication: DIABETES MELLITUS
     Route: 065
  4. ALEVE [Concomitant]
     Indication: PAIN
     Route: 065
  5. NITROQUICK [Concomitant]
     Indication: CARDIAC DISORDER
     Route: 065

REACTIONS (18)
  - ANGINA PECTORIS [None]
  - ANGINA UNSTABLE [None]
  - ASTHENIA [None]
  - CARDIOMEGALY [None]
  - CHRONIC SINUSITIS [None]
  - DIABETES MELLITUS INADEQUATE CONTROL [None]
  - DYSPNOEA EXERTIONAL [None]
  - ELECTROCARDIOGRAM POOR R-WAVE PROGRESSION [None]
  - ELECTROCARDIOGRAM QRS COMPLEX ABNORMAL [None]
  - LEUKOCYTOSIS [None]
  - MYOCARDIAL INFARCTION [None]
  - MYOCARDIAL ISCHAEMIA [None]
  - NIGHT SWEATS [None]
  - OEDEMA PERIPHERAL [None]
  - PAIN IN EXTREMITY [None]
  - PNEUMONIA [None]
  - SLEEP APNOEA SYNDROME [None]
  - SUPRAVENTRICULAR EXTRASYSTOLES [None]
